FAERS Safety Report 14239803 (Version 1)
Quarter: 2017Q4

REPORT INFORMATION
  Report Type: Spontaneous
  Country: RU (occurrence: RU)
  Receive Date: 20171130
  Receipt Date: 20171130
  Transmission Date: 20180321
  Serious: Yes (Hospitalization, Other)
  Sender: FDA-Public Use
  Company Number: RU-ASTRAZENECA-2017SF20270

PATIENT
  Age: 65 Year
  Sex: Female
  Weight: 93 kg

DRUGS (7)
  1. LOSAP [Concomitant]
     Dates: start: 2013
  2. BRILINTA [Suspect]
     Active Substance: TICAGRELOR
     Indication: ANGINA UNSTABLE
     Route: 048
     Dates: start: 201707
  3. CONCOR [Concomitant]
     Active Substance: BISOPROLOL FUMARATE
     Dates: start: 2013
  4. VEROSPIRON [Concomitant]
     Active Substance: SPIRONOLACTONE
     Dates: start: 2013
  5. SIOFOR [Concomitant]
     Active Substance: METFORMIN HYDROCHLORIDE
     Dates: start: 2013
  6. CARDIOMAGNYL [Concomitant]
     Active Substance: ASPIRIN\MAGNESIUM HYDROXIDE
     Dates: start: 2013
  7. ATORVASTATIN [Concomitant]
     Active Substance: ATORVASTATIN
     Dates: start: 2013

REACTIONS (2)
  - Condition aggravated [Recovered/Resolved]
  - Angina unstable [Recovering/Resolving]

NARRATIVE: CASE EVENT DATE: 20171119
